FAERS Safety Report 24539935 (Version 3)
Quarter: 2025Q3

REPORT INFORMATION
  Report Type: Spontaneous
  Country: JP (occurrence: JP)
  Receive Date: 20241023
  Receipt Date: 20250809
  Transmission Date: 20251020
  Serious: Yes (Life-Threatening, Other)
  Sender: ALEXION PHARMACEUTICALS
  Company Number: JP-ASTRAZENECA-240108515_064320_P_1

PATIENT
  Age: 75 Year
  Sex: Male

DRUGS (2)
  1. ANDEXXA [Suspect]
     Active Substance: ANDEXANET ALFA
     Indication: Haemorrhage intracranial
     Dates: start: 20240413, end: 20240413
  2. ANDEXXA [Suspect]
     Active Substance: ANDEXANET ALFA

REACTIONS (2)
  - Cardiac arrest [Recovered/Resolved]
  - Haematoma [Recovered/Resolved with Sequelae]

NARRATIVE: CASE EVENT DATE: 20240413
